FAERS Safety Report 25474503 (Version 2)
Quarter: 2025Q3

REPORT INFORMATION
  Report Type: Spontaneous
  Country: GB (occurrence: GB)
  Receive Date: 20250624
  Receipt Date: 20250722
  Transmission Date: 20251020
  Serious: Yes (Other)
  Sender: ALCON
  Company Number: GB-ALCON LABORATORIES-ALC2025GB003193

PATIENT
  Age: 56 Year
  Sex: Female

DRUGS (1)
  1. LATANOPROST\NETARSUDIL MESYLATE [Suspect]
     Active Substance: LATANOPROST\NETARSUDIL MESYLATE
     Indication: Ocular hypertension
     Route: 065
     Dates: start: 20250109, end: 20250220

REACTIONS (1)
  - Endothelial dysfunction [Recovered/Resolved with Sequelae]

NARRATIVE: CASE EVENT DATE: 20250109
